FAERS Safety Report 5177722-0 (Version None)
Quarter: 2006Q4

REPORT INFORMATION
  Report Type: 
  Country: None (occurrence: None)
  Receive Date: 20061207
  Receipt Date: 20061127
  Transmission Date: 20070319
  Serious: Yes (Hospitalization)
  Sender: FDA-Public Use
  Company Number: 163-20785-06070746

PATIENT
  Age: 80 Year
  Sex: Female

DRUGS (3)
  1. THALOMID [Suspect]
     Indication: WALDENSTROM'S MACROGLOBULINAEMIA
     Dosage: 50-200 MG, DAILY, ORAL
     Route: 048
     Dates: start: 20040101, end: 20040412
  2. ARANESP [Concomitant]
  3. ZOLOFT [Concomitant]

REACTIONS (5)
  - CARDIAC DISORDER [None]
  - DEHYDRATION [None]
  - DYSPNOEA [None]
  - FATIGUE [None]
  - MALAISE [None]
